FAERS Safety Report 10972028 (Version 2)
Quarter: 2015Q2

REPORT INFORMATION
  Report Type: Spontaneous
  Country: JP (occurrence: JP)
  Receive Date: 20150331
  Receipt Date: 20150605
  Transmission Date: 20150821
  Serious: Yes (Death, Hospitalization, Other)
  Sender: FDA-Public Use
  Company Number: JP-ASTRAZENECA-2015SE04971

PATIENT
  Age: 77 Year
  Sex: Male
  Weight: 65 kg

DRUGS (21)
  1. NATRIX [Suspect]
     Active Substance: INDAPAMIDE
     Indication: CHRONIC KIDNEY DISEASE
     Route: 048
     Dates: start: 20141118, end: 20150106
  2. LOXONIN [Concomitant]
     Active Substance: LOXOPROFEN SODIUM
     Dosage: AS REQUIRED
     Dates: start: 20141118
  3. TANATRIL [Concomitant]
     Active Substance: IMIDAPRIL
     Dates: start: 2006
  4. LOXONIN [Concomitant]
     Active Substance: LOXOPROFEN SODIUM
     Dates: start: 2007, end: 20141117
  5. NEXIUM [Suspect]
     Active Substance: ESOMEPRAZOLE MAGNESIUM
     Indication: GASTRIC ULCER
     Route: 048
     Dates: start: 20141208, end: 20150106
  6. ARTIST [Concomitant]
     Active Substance: CARVEDILOL
     Indication: ATRIAL FIBRILLATION
     Route: 048
     Dates: start: 2006
  7. DEPAKENE [Concomitant]
     Active Substance: VALPROIC ACID
     Indication: EPILEPSY
     Route: 048
     Dates: start: 1996, end: 20150106
  8. WARFARIN [Concomitant]
     Active Substance: WARFARIN
     Indication: ATRIAL FIBRILLATION
     Dates: start: 2011, end: 20141217
  9. VASOLAN [Concomitant]
     Active Substance: VERAPAMIL HYDROCHLORIDE
     Dates: start: 2011
  10. ANCARON [Concomitant]
     Active Substance: AMIODARONE HYDROCHLORIDE
     Dates: start: 2011
  11. ACIDLESS [Suspect]
     Active Substance: ALUMINUM HYDROXIDE\MAGNESIUM HYDROXIDE
     Indication: GASTRIC ULCER
     Route: 048
     Dates: start: 20141204, end: 20150106
  12. ZYLORIC [Concomitant]
     Active Substance: ALLOPURINOL
     Indication: HYPERURICAEMIA
     Route: 048
     Dates: start: 2006, end: 20150106
  13. CRAVIT [Concomitant]
     Active Substance: LEVOFLOXACIN
     Dates: start: 2007
  14. AGENTS FOR PEPTIC ULCER [Concomitant]
     Active Substance: UNSPECIFIED INGREDIENT
     Dates: start: 20141204
  15. CALONAL [Concomitant]
     Active Substance: ACETAMINOPHEN
     Dates: start: 2014
  16. LIPITOR [Concomitant]
     Active Substance: ATORVASTATIN CALCIUM
     Indication: DYSLIPIDAEMIA
     Route: 048
     Dates: start: 2007, end: 20150106
  17. AMLODIN [Concomitant]
     Active Substance: AMLODIPINE BESYLATE
     Dates: start: 2006
  18. FLUITRAN [Concomitant]
     Active Substance: TRICHLORMETHIAZIDE
     Dates: start: 2006
  19. HYPOCA [Concomitant]
     Active Substance: BARNIDIPINE HYDROCHLORIDE
     Dates: start: 2006
  20. ELIQUIS [Suspect]
     Active Substance: APIXABAN
     Indication: ATRIAL FIBRILLATION
     Route: 048
     Dates: start: 20141218, end: 20150106
  21. CEFZON [Concomitant]
     Active Substance: CEFDINIR

REACTIONS (9)
  - Wound infection pseudomonas [Unknown]
  - Pleural effusion [Unknown]
  - Wound infection staphylococcal [Unknown]
  - Systemic mycosis [Unknown]
  - Toxic epidermal necrolysis [Fatal]
  - Multi-organ failure [Fatal]
  - Cytomegalovirus viraemia [Unknown]
  - Platelet count decreased [Fatal]
  - Blood albumin decreased [Unknown]

NARRATIVE: CASE EVENT DATE: 20150106
